FAERS Safety Report 8535557-2 (Version None)
Quarter: 2012Q3

REPORT INFORMATION
  Report Type: 
  Country: None (occurrence: None)
  Receive Date: 20120717
  Receipt Date: 20120717
  Transmission Date: 20120928
  Serious: Yes (Other)
  Sender: FDA-Public Use
  Company Number: None

PATIENT
  Age: 66 Year
  Sex: Female
  Weight: 52.1637 kg

DRUGS (2)
  1. FENTANYL [Suspect]
     Indication: PAIN
     Dosage: 100MCG/HR CHANGE EVERY 48 HR TRANSDERMAL
     Route: 062
     Dates: start: 20120616, end: 20120716
  2. FENTANYL [Suspect]
     Indication: PAIN
     Dosage: 25MCG/HR CHANGE EVERY 48 HR TRANSDERMAL
     Route: 062
     Dates: start: 20120616, end: 20120716

REACTIONS (7)
  - PRODUCT SUBSTITUTION ISSUE [None]
  - PRODUCT QUALITY ISSUE [None]
  - PRODUCT ADHESION ISSUE [None]
  - PRODUCT PHYSICAL ISSUE [None]
  - PRURITUS [None]
  - INADEQUATE ANALGESIA [None]
  - ERYTHEMA [None]
